FAERS Safety Report 6248150-1 (Version None)
Quarter: 2009Q2

REPORT INFORMATION
  Report Type: 
  Country: None (occurrence: None)
  Receive Date: 20090624
  Receipt Date: 20090624
  Transmission Date: 20091009
  Serious: Yes (Disabling)
  Sender: FDA-Public Use
  Company Number: None

PATIENT
  Sex: Female
  Weight: 71.2147 kg

DRUGS (1)
  1. BONIVA [Suspect]
     Indication: BLOOD CALCIUM DECREASED

REACTIONS (2)
  - DENTAL CARIES [None]
  - TOOTH LOSS [None]
